FAERS Safety Report 10626439 (Version 1)
Quarter: 2014Q4

REPORT INFORMATION
  Report Type: Spontaneous
  Country: US (occurrence: US)
  Receive Date: 20141204
  Receipt Date: 20141204
  Transmission Date: 20150529
  Serious: No
  Sender: FDA-Public Use
  Company Number: US-TARO-2014TAR00256

PATIENT
  Age: 77 Year
  Sex: Female
  Weight: 67.12 kg

DRUGS (8)
  1. TOPICORT [Suspect]
     Active Substance: DESOXIMETASONE
     Dosage: UNK, EVERY 48 HOURS
     Route: 061
     Dates: start: 20140815
  2. METOPROLOL [Concomitant]
     Active Substance: METOPROLOL
     Indication: HYPERTENSION
  3. VITAMIN D [Concomitant]
     Active Substance: CHOLECALCIFEROL
     Indication: OSTEOPOROSIS
     Dosage: UNK, 1X/MONTH
  4. PEPCID [Concomitant]
     Active Substance: FAMOTIDINE
  5. TOPICORT [Suspect]
     Active Substance: DESOXIMETASONE
     Indication: ECZEMA
     Dosage: UNK
     Route: 061
     Dates: start: 201403
  6. SIMVASTATIN. [Concomitant]
     Active Substance: SIMVASTATIN
     Indication: BLOOD CHOLESTEROL INCREASED
  7. PANTOPRAZOLE [Concomitant]
     Active Substance: PANTOPRAZOLE SODIUM
  8. RESTASIS [Concomitant]
     Active Substance: CYCLOSPORINE

REACTIONS (6)
  - Eye irritation [Not Recovered/Not Resolved]
  - Pruritus [Recovered/Resolved]
  - Skin irritation [Recovered/Resolved]
  - Seborrhoea [Not Recovered/Not Resolved]
  - Accidental exposure to product [Not Recovered/Not Resolved]
  - Skin burning sensation [Recovered/Resolved]

NARRATIVE: CASE EVENT DATE: 201403
